FAERS Safety Report 20529470 (Version 2)
Quarter: 2022Q2

REPORT INFORMATION
  Report Type: Report from Study
  Country: CN (occurrence: CN)
  Receive Date: 20220228
  Receipt Date: 20220407
  Transmission Date: 20220721
  Serious: Yes (Hospitalization)
  Sender: FDA-Public Use
  Company Number: CN-BIOGEN-2022BI01092691

PATIENT
  Age: 4 Year
  Sex: Male
  Weight: 14.5 kg

DRUGS (3)
  1. SPINRAZA [Suspect]
     Active Substance: NUSINERSEN
     Indication: Spinal muscular atrophy
     Route: 037
     Dates: start: 20220111
  2. LIYUEXI (MIDAZOLAM) [Concomitant]
     Indication: Product used for unknown indication
     Dosage: INTRAVENOUS BOLUS SEDATION WITH LIYUEXI 3 MILLIGRAMS
     Route: 040
  3. LIDOCAINE [Concomitant]
     Active Substance: LIDOCAINE
     Indication: Product used for unknown indication
     Route: 065
     Dates: start: 20220125

REACTIONS (2)
  - Pneumonia [Recovered/Resolved]
  - Pneumonia mycoplasmal [Recovered/Resolved]

NARRATIVE: CASE EVENT DATE: 20220118
